FAERS Safety Report 24388756 (Version 2)
Quarter: 2024Q4

REPORT INFORMATION
  Report Type: Report from Study
  Country: US (occurrence: US)
  Receive Date: 20241002
  Receipt Date: 20241010
  Transmission Date: 20250115
  Serious: Yes (Other)
  Sender: ABBVIE
  Company Number: US-ABBVIE-5946026

PATIENT
  Sex: Female

DRUGS (5)
  1. SKYRIZI [Suspect]
     Active Substance: RISANKIZUMAB-RZAA
     Indication: Psoriatic arthropathy
     Dosage: AT WEEK 0?FORM STRENGTH: 150MG
     Route: 058
     Dates: start: 202404, end: 202404
  2. SKYRIZI [Suspect]
     Active Substance: RISANKIZUMAB-RZAA
     Dosage: AT WEEK 4?FORM STRENGTH: 150MG
     Route: 058
     Dates: start: 202405, end: 202405
  3. SKYRIZI [Suspect]
     Active Substance: RISANKIZUMAB-RZAA
     Dosage: FORM STRENGTH: 150MG
     Route: 058
     Dates: start: 20240729
  4. SKYRIZI [Suspect]
     Active Substance: RISANKIZUMAB-RZAA
     Route: 058
     Dates: start: 2023
  5. METHOTREXATE [Concomitant]
     Active Substance: METHOTREXATE
     Indication: Product used for unknown indication

REACTIONS (13)
  - Neoplasm malignant [Not Recovered/Not Resolved]
  - Female genital operation [Unknown]
  - Mobility decreased [Unknown]
  - Laparotomy [Unknown]
  - Joint range of motion decreased [Unknown]
  - Intestinal resection [Unknown]
  - Loss of personal independence in daily activities [Unknown]
  - Psoriatic arthropathy [Unknown]
  - Dysstasia [Unknown]
  - General physical health deterioration [Unknown]
  - Gait disturbance [Unknown]
  - Peritonitis [Unknown]
  - Autoimmune disorder [Not Recovered/Not Resolved]

NARRATIVE: CASE EVENT DATE: 20240101
